FAERS Safety Report 18731757 (Version 5)
Quarter: 2021Q2

REPORT INFORMATION
  Report Type: Report from Study
  Country: US (occurrence: US)
  Receive Date: 20210112
  Receipt Date: 20210630
  Transmission Date: 20210717
  Serious: Yes (Other)
  Sender: FDA-Public Use
  Company Number: US-PFIZER INC-2020419255

PATIENT
  Age: 64 Year
  Sex: Female

DRUGS (5)
  1. IBRANCE [Suspect]
     Active Substance: PALBOCICLIB
     Dosage: 100 MG, CYCLIC(DAILY 21 DAYS ON, 7 DAYS OFF)
     Route: 048
     Dates: start: 20210210, end: 2021
  2. METOPROLOL. [Concomitant]
     Active Substance: METOPROLOL
     Indication: PALPITATIONS
     Dosage: UNK
  3. IBRANCE [Suspect]
     Active Substance: PALBOCICLIB
     Dosage: 100 MG, CYCLIC (21 DAYS ON, 7 OFF)
     Route: 048
     Dates: start: 20210318
  4. PREDNISONE. [Suspect]
     Active Substance: PREDNISONE
     Dosage: UNK
  5. IBRANCE [Suspect]
     Active Substance: PALBOCICLIB
     Indication: BREAST CANCER FEMALE
     Dosage: 125 MG, CYCLIC (ONCE DAILY, FOR 21 DAYS ON, 7 OFF)
     Route: 048
     Dates: start: 20201016, end: 202012

REACTIONS (24)
  - Neuropathy peripheral [Unknown]
  - White blood cell count decreased [Recovering/Resolving]
  - Product dose omission issue [Unknown]
  - Weight decreased [Recovering/Resolving]
  - Palpitations [Not Recovered/Not Resolved]
  - Feeling of body temperature change [Unknown]
  - Fall [Unknown]
  - Decreased appetite [Unknown]
  - Rash [Recovering/Resolving]
  - Cough [Unknown]
  - Chills [Unknown]
  - Dysphonia [Unknown]
  - Feeling abnormal [Unknown]
  - Eczema [Recovering/Resolving]
  - Fatigue [Not Recovered/Not Resolved]
  - Rash pruritic [Unknown]
  - Nausea [Not Recovered/Not Resolved]
  - Gastric disorder [Unknown]
  - Chest pain [Not Recovered/Not Resolved]
  - Diarrhoea [Not Recovered/Not Resolved]
  - Limb injury [Unknown]
  - Dyspnoea [Unknown]
  - Syncope [Unknown]
  - Constipation [Not Recovered/Not Resolved]

NARRATIVE: CASE EVENT DATE: 202011
